FAERS Safety Report 22287261 (Version 2)
Quarter: 2023Q2

REPORT INFORMATION
  Report Type: Spontaneous
  Country: CA (occurrence: CA)
  Receive Date: 20230505
  Receipt Date: 20230531
  Transmission Date: 20230721
  Serious: Yes (Other)
  Sender: FDA-Public Use
  Company Number: CA-002147023-NVSC2023CA097310

PATIENT
  Age: 13 Year
  Sex: Female
  Weight: 35 kg

DRUGS (1)
  1. METHOTREXATE [Suspect]
     Active Substance: METHOTREXATE
     Indication: Product used for unknown indication
     Dosage: UNK
     Route: 065

REACTIONS (12)
  - Blood pressure increased [Recovered/Resolved]
  - Body temperature abnormal [Recovered/Resolved]
  - COVID-19 [Recovered/Resolved]
  - Discomfort [Recovered/Resolved]
  - Ear pain [Recovered/Resolved]
  - Haematochezia [Recovered/Resolved]
  - Heart rate irregular [Recovered/Resolved]
  - Oxygen saturation abnormal [Recovered/Resolved]
  - Poor venous access [Recovered/Resolved]
  - Acne [Recovered/Resolved]
  - Product use issue [Recovered/Resolved]
  - Incorrect drug administration rate [Recovered/Resolved]
